FAERS Safety Report 6755288-9 (Version None)
Quarter: 2010Q2

REPORT INFORMATION
  Report Type: 
  Country: None (occurrence: None)
  Receive Date: 20100602
  Receipt Date: 20100518
  Transmission Date: 20101027
  Serious: Yes (Hospitalization, Other)
  Sender: FDA-Public Use
  Company Number: 2010SCPR000742

PATIENT
  Age: 33 Year
  Sex: Female

DRUGS (1)
  1. VERAPAMIL [Suspect]
     Indication: DRUG USE FOR UNKNOWN INDICATION
     Dosage: 50 DF, ORAL
     Route: 048

REACTIONS (15)
  - ATRIOVENTRICULAR BLOCK COMPLETE [None]
  - BRADYCARDIA [None]
  - CARDIAC ARREST [None]
  - CARDIOGENIC SHOCK [None]
  - DRUG TOXICITY [None]
  - ELECTROCARDIOGRAM T WAVE INVERSION [None]
  - HYPERGLYCAEMIA [None]
  - HYPOKALAEMIA [None]
  - HYPOTENSION [None]
  - INTENTIONAL OVERDOSE [None]
  - LEUKOCYTOSIS [None]
  - METABOLIC ACIDOSIS [None]
  - RESPIRATORY ARREST [None]
  - SOMNOLENCE [None]
  - SUICIDE ATTEMPT [None]
